FAERS Safety Report 25870385 (Version 1)
Quarter: 2025Q4

REPORT INFORMATION
  Report Type: Spontaneous
  Country: JP (occurrence: JP)
  Receive Date: 20251001
  Receipt Date: 20251001
  Transmission Date: 20260118
  Serious: Yes (Other)
  Sender: Alora Pharma
  Company Number: JP-ACELLA PHARMACEUTICALS, LLC-2025ALO02519

PATIENT
  Age: 2 Year
  Sex: Male

DRUGS (4)
  1. LACOSAMIDE [Suspect]
     Active Substance: LACOSAMIDE
     Indication: Partial seizures
     Dosage: 40 MG, 1X/DAY
     Route: 065
  2. LEVETIRACETAM [Concomitant]
     Active Substance: LEVETIRACETAM
     Indication: Partial seizures
  3. VALPROATE [Concomitant]
     Active Substance: VALPROIC ACID
     Indication: Partial seizures
  4. VALPROATE [Concomitant]
     Active Substance: VALPROIC ACID
     Dosage: ^DOSE WAS INCREASED^

REACTIONS (2)
  - Myoclonus [Recovered/Resolved]
  - Electroencephalogram abnormal [Recovered/Resolved]
